FAERS Safety Report 8819133 (Version 4)
Quarter: 2013Q1

REPORT INFORMATION
  Report Type: Report from Study
  Country: NL (occurrence: NL)
  Receive Date: 20121001
  Receipt Date: 20130222
  Transmission Date: 20140127
  Serious: Yes (Death, Hospitalization, Other)
  Sender: FDA-Public Use
  Company Number: NL-MPIJNJ-2012-06746

PATIENT
  Sex: 0

DRUGS (11)
  1. VELCADE [Suspect]
     Indication: PLASMA CELL MYELOMA
     Dosage: 2.73 MG, CYCLIC
     Route: 042
     Dates: start: 20120911, end: 20120914
  2. CYCLOPHOSPHAMIDE [Suspect]
     Indication: PLASMA CELL MYELOMA
     Dosage: 1050 MG, UNK
     Route: 042
     Dates: start: 20120911, end: 20120911
  3. DEXAMETHASONE [Suspect]
     Indication: PLASMA CELL MYELOMA
     Dosage: 40 MG, UNK
     Route: 048
     Dates: start: 20120911, end: 20120915
  4. LACTULOSE [Concomitant]
  5. FRAGMIN                            /00889602/ [Concomitant]
  6. BACTRIMEL [Concomitant]
     Dosage: 480 MG, UNK
  7. VERAPAMIL [Concomitant]
     Dosage: 240 MG, UNK
  8. PARACETAMOL [Concomitant]
     Dosage: 1000 MG, UNK
  9. ZELITREX                           /01269701/ [Concomitant]
     Dosage: 500 MG, UNK
  10. COTRIMOXAZOL [Concomitant]
     Dosage: 480 MG, UNK
     Route: 048
  11. FLUCONAZOL [Concomitant]
     Dosage: 200 MG, UNK
     Route: 048

REACTIONS (4)
  - Hyponatraemia [Fatal]
  - Intestinal ischaemia [Fatal]
  - Abdominal sepsis [Fatal]
  - Ileus paralytic [Unknown]
